FAERS Safety Report 13451716 (Version 1)
Quarter: 2017Q2

REPORT INFORMATION
  Report Type: Spontaneous
  Country: None (occurrence: US)
  Receive Date: 20170417
  Receipt Date: 20170417
  Transmission Date: 20170830
  Serious: No
  Sender: FDA-Public Use
  Company Number: None

PATIENT
  Age: 78 Year
  Sex: Female

DRUGS (1)
  1. IBRANCE [Suspect]
     Active Substance: PALBOCICLIB
     Indication: BREAST CANCER FEMALE
     Dosage: 125MG TAKE ONE CAPSULE BY MOUTH DAILY FOR 21 ORAL
     Route: 048
     Dates: start: 20161109

REACTIONS (3)
  - Rash vesicular [None]
  - Rash erythematous [None]
  - Scab [None]
